FAERS Safety Report 4860338-0 (Version None)
Quarter: 2005Q4

REPORT INFORMATION
  Report Type: 
  Country: None (occurrence: None)
  Receive Date: 20051215
  Receipt Date: 20051205
  Transmission Date: 20060501
  Serious: Yes (Other)
  Sender: FDA-Public Use
  Company Number: 13017

PATIENT
  Sex: Female

DRUGS (2)
  1. AMIODARONE [Suspect]
     Indication: ATRIAL FIBRILLATION
  2. AMIODARONE [Suspect]
     Indication: HYPERTROPHIC CARDIOMYOPATHY

REACTIONS (1)
  - COORDINATION ABNORMAL [None]
